FAERS Safety Report 8380350-7 (Version None)
Quarter: 2012Q2

REPORT INFORMATION
  Report Type: 
  Country: None (occurrence: None)
  Receive Date: 20120522
  Receipt Date: 20110823
  Transmission Date: 20120825
  Serious: No
  Sender: FDA-Public Use
  Company Number: 2011-07515

PATIENT
  Age: 80 Year
  Sex: Male

DRUGS (7)
  1. MACROBID [Concomitant]
  2. MITOMYCIN [Concomitant]
  3. PERSULFATE [Concomitant]
  4. GEMFIBROZIL [Concomitant]
  5. THERACYS [Suspect]
     Indication: BLADDER CANCER
     Dosage: I.VES.
     Dates: start: 20110629, end: 20110629
  6. PRILOSEC [Concomitant]
  7. UREXATHAL [Concomitant]

REACTIONS (5)
  - PROSTATITIS [None]
  - MUSCULOSKELETAL DISCOMFORT [None]
  - URINARY TRACT INFECTION [None]
  - ESCHERICHIA TEST POSITIVE [None]
  - BLOOD PRESSURE INCREASED [None]
